FAERS Safety Report 10404029 (Version 1)
Quarter: 2014Q1

REPORT INFORMATION
  Report Type: Spontaneous
  Country: US (occurrence: None)
  Receive Date: 20131018
  Receipt Date: 20131018
  Transmission Date: 20141002
  Serious: No
  Sender: FDA-Public Use
  Company Number: AEGR000036

PATIENT
  Age: 67 Year
  Sex: Female
  Weight: 65.8 kg

DRUGS (7)
  1. JUXTAPID (LOMITAPIDE) CAPSULE, 5 MG [Suspect]
     Indication: TYPE IIA HYPERLIPIDAEMIA
     Route: 048
     Dates: start: 20130321, end: 20130611
  2. SERTRALINE (SERTRALINE HYDROCHLORIDE) [Concomitant]
  3. FUROSEMIDSE (FUROSEMIDE) [Concomitant]
  4. WARFARIN (WARFARIN SODIUM) [Concomitant]
  5. CARVEDILOL (CARVEDILOL) [Concomitant]
  6. SIMVASTATIN (SIMVASTATIN) [Concomitant]
  7. TIKOSYN (DOFETILIDE) [Concomitant]

REACTIONS (4)
  - Dyspepsia [None]
  - Gastrointestinal disorder [None]
  - Diarrhoea [None]
  - Abdominal pain [None]
